FAERS Safety Report 4532308-3 (Version None)
Quarter: 2004Q4

REPORT INFORMATION
  Report Type: 
  Country: None (occurrence: None)
  Receive Date: 20041206
  Receipt Date: 20041020
  Transmission Date: 20050328
  Serious: No
  Sender: FDA-Public Use
  Company Number: US_0410107309

PATIENT
  Sex: Male

DRUGS (1)
  1. CYMBALTA [Suspect]
     Indication: DEPRESSION
     Dosage: 30 MG DAY

REACTIONS (2)
  - ANORGASMIA [None]
  - EJACULATION FAILURE [None]
